FAERS Safety Report 11348912 (Version 4)
Quarter: 2022Q1

REPORT INFORMATION
  Report Type: Other
  Country: CA (occurrence: CA)
  Receive Date: 20150807
  Receipt Date: 20220225
  Transmission Date: 20220423
  Serious: Yes (Other)
  Sender: FDA-Public Use
  Company Number: CA-ROCHE-1618679

PATIENT
  Age: 73 Year
  Sex: Female

DRUGS (18)
  1. XOLAIR [Suspect]
     Active Substance: OMALIZUMAB
     Indication: Asthma
     Route: 058
     Dates: start: 20150129
  2. HYDROMORPHONE HCL [Concomitant]
     Active Substance: HYDROMORPHONE HYDROCHLORIDE
  3. CELEBREX [Concomitant]
     Active Substance: CELECOXIB
  4. ADVAIR DISKUS [Concomitant]
     Active Substance: FLUTICASONE PROPIONATE\SALMETEROL XINAFOATE
  5. LANTUS [Concomitant]
     Active Substance: INSULIN GLARGINE
  6. AMLODIPINE BESYLATE [Concomitant]
     Active Substance: AMLODIPINE BESYLATE
  7. MINOCYCLINE HYDROCHLORIDE [Concomitant]
     Active Substance: MINOCYCLINE HYDROCHLORIDE
  8. CLONAZEPAM [Concomitant]
     Active Substance: CLONAZEPAM
  9. PENNSAID [Concomitant]
     Active Substance: DICLOFENAC SODIUM
  10. PREVACID [Concomitant]
     Active Substance: LANSOPRAZOLE
  11. DOMPERIDONE [Concomitant]
     Active Substance: DOMPERIDONE
  12. RANITIDINE HYDROCHLORIDE [Concomitant]
     Active Substance: RANITIDINE HYDROCHLORIDE
  13. RAMIPRIL [Concomitant]
     Active Substance: RAMIPRIL
  14. LEVOTHYROXINE [Concomitant]
     Active Substance: LEVOTHYROXINE
  15. SIMVASTATIN [Concomitant]
     Active Substance: SIMVASTATIN
  16. ALBUTEROL [Concomitant]
     Active Substance: ALBUTEROL
  17. SPIRIVA [Concomitant]
     Active Substance: TIOTROPIUM BROMIDE MONOHYDRATE
  18. PREDNISONE [Concomitant]
     Active Substance: PREDNISONE

REACTIONS (3)
  - Spinal stenosis [Unknown]
  - Forced expiratory volume decreased [Unknown]
  - Weight increased [Unknown]
